FAERS Safety Report 8836571 (Version 2)
Quarter: 2013Q1

REPORT INFORMATION
  Report Type: Spontaneous
  Country: US (occurrence: None)
  Receive Date: 20121009
  Receipt Date: 20121017
  Transmission Date: 20140127
  Serious: Yes (Hospitalization)
  Sender: FDA-Public Use
  Company Number: 2012100008

PATIENT
  Age: 59 Year
  Sex: Male

DRUGS (20)
  1. TORASEMIDE [Suspect]
  2. SAXAGLIPTIN [Suspect]
     Indication: TYPE 2 DIABETES MELLITUS
     Dates: start: 20110325, end: 20110708
  3. FUROSEMIDE (FUROSEMIDE) [Suspect]
  4. SPIRONOLACTONE [Suspect]
  5. CARVEDILOL (CARVEDILOL) [Suspect]
  6. ZETIA (EZETIMIBE) [Concomitant]
  7. ACETYLSALICYLIC ACID [Concomitant]
  8. FIBRIC ACID [Concomitant]
  9. AMLODIPINE [Concomitant]
  10. CHOLECALCIFEROL [Concomitant]
  11. CLONAZEPAM [Concomitant]
  12. CLOPIDOGREL BISULFATE [Concomitant]
  13. FENOFIBRATE [Concomitant]
  14. FOLIC ACID [Concomitant]
  15. GOLYTELY (POLYETHYLENE GLYCOL) [Concomitant]
  16. AMITIZA (LUBIPROSTONE) [Concomitant]
  17. NITROGLYCERIN [Concomitant]
  18. SIMVASTATIN [Concomitant]
  19. TEMAZEPAM [Concomitant]
  20. ACETAMINOPHEN [Concomitant]

REACTIONS (13)
  - Renal failure acute [None]
  - Hypotension [None]
  - Vision blurred [None]
  - Dizziness [None]
  - Dilatation ventricular [None]
  - Left atrial dilatation [None]
  - Aortic valve sclerosis [None]
  - Hepatic steatosis [None]
  - Hypovolaemia [None]
  - Oedema [None]
  - Cardiac failure congestive [None]
  - Irritable bowel syndrome [None]
  - Colon adenoma [None]
